FAERS Safety Report 9630990 (Version 4)
Quarter: 2014Q1

REPORT INFORMATION
  Report Type: Spontaneous
  Country: FR (occurrence: FR)
  Receive Date: 20131018
  Receipt Date: 20140108
  Transmission Date: 20141002
  Serious: Yes (Disabling, Other)
  Sender: FDA-Public Use
  Company Number: FR-PFIZER INC-2013296316

PATIENT
  Age: 51 Year
  Sex: Female

DRUGS (9)
  1. EUPANTOL [Suspect]
     Dosage: 40 MG, DAILY
     Route: 048
  2. TAHOR [Suspect]
     Indication: DYSLIPIDAEMIA
     Dosage: 40 MG, DAILY
     Route: 048
     Dates: start: 2008
  3. RAPAMUNE [Suspect]
     Indication: RENAL TRANSPLANT
     Dosage: 1 MG, DAILY
     Route: 048
     Dates: start: 201106
  4. BISOPROLOL FUMARATE [Suspect]
     Dosage: 10 MG, DAILY
     Route: 048
  5. CORTANCYL [Suspect]
     Indication: RENAL TRANSPLANT
     Dosage: 10 MG, DAILY
     Route: 048
     Dates: start: 20110507
  6. CELLCEPT [Suspect]
     Indication: RENAL TRANSPLANT
     Dosage: 500 MG, 2X/DAY
     Route: 048
     Dates: start: 20110507
  7. UVEDOSE [Suspect]
     Dosage: 1 DF, EVERY 15 DAYS
     Route: 048
  8. SPECIAFOLDINE [Suspect]
     Dosage: 5 MG, DAILY
     Route: 048
  9. EUPRESSYL [Concomitant]
     Dosage: UNK

REACTIONS (4)
  - Lymphoedema [Not Recovered/Not Resolved]
  - Inflammation [Not Recovered/Not Resolved]
  - Erythema [Not Recovered/Not Resolved]
  - Breast cancer [Recovered/Resolved]
